FAERS Safety Report 17786387 (Version 3)
Quarter: 2020Q2

REPORT INFORMATION
  Report Type: Spontaneous
  Country: LT (occurrence: LT)
  Receive Date: 20200514
  Receipt Date: 20200522
  Transmission Date: 20200714
  Serious: Yes (Hospitalization)
  Sender: FDA-Public Use
  Company Number: NVSC2020LT129954

PATIENT
  Age: 23 Year
  Sex: Female

DRUGS (4)
  1. HUMIRA [Suspect]
     Active Substance: ADALIMUMAB
     Indication: CROHN^S DISEASE
     Dosage: 40 MG, Q2W
     Route: 058
     Dates: start: 20181016, end: 201911
  2. AZATHIOPRINE. [Concomitant]
     Active Substance: AZATHIOPRINE
     Indication: PRODUCT USED FOR UNKNOWN INDICATION
     Dosage: UNK
     Route: 065
     Dates: start: 202001
  3. CIPROFLOXACIN. [Suspect]
     Active Substance: CIPROFLOXACIN
     Indication: C-REACTIVE PROTEIN INCREASED
     Dosage: UNK
     Route: 065
     Dates: start: 202001
  4. HUMIRA [Suspect]
     Active Substance: ADALIMUMAB
     Dosage: 40 MG, Q2W
     Route: 058
     Dates: start: 202001, end: 202002

REACTIONS (11)
  - Drug ineffective [Unknown]
  - Anal fistula [Recovering/Resolving]
  - Weight decreased [Not Recovered/Not Resolved]
  - Anal abscess [Recovered/Resolved]
  - Anal abscess [Recovered/Resolved]
  - Vomiting [Not Recovered/Not Resolved]
  - Weight decreased [Recovered/Resolved]
  - Diarrhoea [Not Recovered/Not Resolved]
  - Nausea [Not Recovered/Not Resolved]
  - Body temperature increased [Recovered/Resolved]
  - Food aversion [Not Recovered/Not Resolved]

NARRATIVE: CASE EVENT DATE: 201911
